FAERS Safety Report 5225548-1 (Version None)
Quarter: 2007Q1

REPORT INFORMATION
  Report Type: 
  Country: None (occurrence: None)
  Receive Date: 20061201
  Receipt Date: 20061023
  Transmission Date: 20070707
  Serious: Yes (Hospitalization, Other)
  Sender: FDA-Public Use
  Company Number: US200610000978

PATIENT
  Age: 42 Year
  Sex: Male
  Weight: 94.3 kg

DRUGS (5)
  1. CYMBALTA [Suspect]
     Indication: DEPRESSION
     Dosage: 20 MG, 2/D
     Dates: start: 20060918, end: 20060924
  2. METHADONE HCL [Concomitant]
  3. LIPITOR [Concomitant]
  4. SYNTHROID [Concomitant]
  5. ZANAFLEX [Concomitant]

REACTIONS (4)
  - FLUSHING [None]
  - LEUKOCYTOSIS [None]
  - RASH [None]
  - SEROTONIN SYNDROME [None]
